FAERS Safety Report 18238451 (Version 1)
Quarter: 2020Q3

REPORT INFORMATION
  Report Type: Other
  Country: FR (occurrence: FR)
  Receive Date: 20200907
  Receipt Date: 20200907
  Transmission Date: 20201103
  Serious: Yes (Other)
  Sender: FDA-Public Use
  Company Number: FR-APOTEX-2020AP017447

PATIENT
  Age: 55 Year
  Sex: Female

DRUGS (5)
  1. MIANSERIN HYDROCHLORIDE [Suspect]
     Active Substance: MIANSERIN HYDROCHLORIDE
     Indication: PSYCHIATRIC SYMPTOM
     Dosage: 90 MILLIGRAM, QD
     Route: 065
     Dates: start: 2018
  2. DEROXAT [Suspect]
     Active Substance: PAROXETINE HYDROCHLORIDE
     Indication: PSYCHIATRIC SYMPTOM
     Dosage: 60 MILLIGRAM, QD
     Route: 065
     Dates: start: 201806
  3. ABILIFY [Interacting]
     Active Substance: ARIPIPRAZOLE
     Indication: PSYCHIATRIC SYMPTOM
     Dosage: 10 MILLIGRAM, QD
     Route: 065
     Dates: start: 201912, end: 20200707
  4. LYRICA [Suspect]
     Active Substance: PREGABALIN
     Indication: PSYCHIATRIC SYMPTOM
     Dosage: UNK
     Route: 065
  5. RAMIPRIL. [Concomitant]
     Active Substance: RAMIPRIL
     Indication: PRODUCT USED FOR UNKNOWN INDICATION
     Dosage: UNK
     Route: 065

REACTIONS (2)
  - Electrocardiogram QT prolonged [Not Recovered/Not Resolved]
  - Drug interaction [Unknown]

NARRATIVE: CASE EVENT DATE: 202007
